FAERS Safety Report 9376258 (Version 1)
Quarter: 2013Q3

REPORT INFORMATION
  Report Type: Spontaneous
  Country: DE (occurrence: DE)
  Receive Date: 20130701
  Receipt Date: 20130701
  Transmission Date: 20140515
  Serious: Yes (Hospitalization)
  Sender: FDA-Public Use
  Company Number: DE-AMGEN-DEUSP2013045461

PATIENT
  Sex: Male

DRUGS (11)
  1. PEGFILGRASTIM [Suspect]
     Indication: B-CELL LYMPHOMA
     Dosage: 6 MG, 1X/DAY
     Route: 058
     Dates: start: 20130525
  2. RITUXIMAB [Suspect]
     Indication: B-CELL LYMPHOMA
     Dosage: 800 MG, 1X/DAY
     Route: 042
     Dates: start: 20130521
  3. CYCLOPHOSPHAMIDE [Concomitant]
     Indication: B-CELL LYMPHOMA
     Dosage: 1500 MG, 1X/DAY
     Route: 042
     Dates: start: 20130522
  4. DOXORUBICIN [Concomitant]
     Indication: B-CELL LYMPHOMA
     Dosage: 100 MG, 1X/DAY
     Route: 042
     Dates: start: 20130522
  5. VINCRISTINE [Concomitant]
     Indication: B-CELL LYMPHOMA
     Dosage: 2 MG, 1X/DAY
     Route: 042
     Dates: start: 20130522
  6. PREDNISONE [Concomitant]
     Indication: B-CELL LYMPHOMA
     Dosage: 100 MG, 1X/DAY
     Route: 048
     Dates: start: 20130522
  7. PANTOPRAZOL [Concomitant]
     Dosage: 40 MG, 1 TIMES A DAY
     Route: 048
  8. ALLOPURINOL [Concomitant]
     Dosage: 300 MG, 1 TIMES A DAY
     Route: 048
  9. TIOTROPIUM BROMIDE [Concomitant]
     Dosage: UNK
     Route: 055
  10. SALMETEROL/FLUTICASONPROPIONAAT [Concomitant]
     Dosage: UNK
     Route: 055
  11. VALSARTAN [Concomitant]
     Dosage: UNK
     Route: 048

REACTIONS (2)
  - Tachycardia [Recovered/Resolved]
  - Hypotension [Recovered/Resolved]
